FAERS Safety Report 8810113 (Version 2)
Quarter: 2012Q4

REPORT INFORMATION
  Report Type: 
  Country: CO (occurrence: CO)
  Receive Date: 20120926
  Receipt Date: 20121019
  Transmission Date: 20130627
  Serious: Yes (Hospitalization)
  Sender: FDA-Public Use
  Company Number: CO-ASTRAZENECA-2012SE72949

PATIENT
  Age: 66 Year
  Sex: Male

DRUGS (2)
  1. BRILINTA [Suspect]
     Route: 048
     Dates: start: 20120915, end: 20120915
  2. BRILINTA [Suspect]
     Route: 048

REACTIONS (4)
  - Accidental overdose [Recovered/Resolved with Sequelae]
  - Dyspnoea [Unknown]
  - Hyperuricaemia [Unknown]
  - Incorrect dose administered [Recovered/Resolved]
